FAERS Safety Report 10098889 (Version 1)
Quarter: 2014Q2

REPORT INFORMATION
  Report Type: Spontaneous
  Country: US (occurrence: US)
  Receive Date: 20140423
  Receipt Date: 20140423
  Transmission Date: 20141212
  Serious: No
  Sender: FDA-Public Use
  Company Number: US-009507513-1404USA010616

PATIENT
  Age: 78 Year
  Sex: Male

DRUGS (1)
  1. AFRIN [Suspect]
     Dosage: SQUIRT NO MORE THAN TWICE A DAY FOR THREE DAYS, BID
     Route: 045

REACTIONS (2)
  - Drug ineffective [Unknown]
  - Product packaging issue [Unknown]
